FAERS Safety Report 25385669 (Version 1)
Quarter: 2025Q2

REPORT INFORMATION
  Report Type: Spontaneous
  Country: US (occurrence: None)
  Receive Date: 20250601
  Receipt Date: 20250601
  Transmission Date: 20250716
  Serious: Yes (Hospitalization)
  Sender: FDA-CTU
  Company Number: None

PATIENT
  Sex: Female

DRUGS (2)
  1. ZOLOFT [Suspect]
     Active Substance: SERTRALINE HYDROCHLORIDE
     Indication: Anxiety
  2. EFFEXOR XR [Suspect]
     Active Substance: VENLAFAXINE HYDROCHLORIDE
     Indication: Suicidal ideation

REACTIONS (33)
  - Panic attack [None]
  - Bruxism [None]
  - Insomnia [None]
  - Anhedonia [None]
  - Electric shock sensation [None]
  - Suicidal ideation [None]
  - Palpitations [None]
  - Autophobia [None]
  - Delusion [None]
  - Akathisia [None]
  - Headache [None]
  - Derealisation [None]
  - Depersonalisation/derealisation disorder [None]
  - Depression [None]
  - Anger [None]
  - Anxiety [None]
  - Weight decreased [None]
  - Neuralgia [None]
  - Cognitive disorder [None]
  - Agitation [None]
  - Iatrogenic injury [None]
  - Disability [None]
  - Arthralgia [None]
  - Muscle twitching [None]
  - Muscle twitching [None]
  - Burning sensation [None]
  - Genital burning sensation [None]
  - Memory impairment [None]
  - Muscle rigidity [None]
  - Hyperacusis [None]
  - Parosmia [None]
  - Menstruation irregular [None]
  - Temperature regulation disorder [None]
